FAERS Safety Report 8501920-9 (Version None)
Quarter: 2012Q3

REPORT INFORMATION
  Report Type: 
  Country: None (occurrence: None)
  Receive Date: 20120711
  Receipt Date: 20120706
  Transmission Date: 20120928
  Serious: Yes (Hospitalization)
  Sender: FDA-Public Use
  Company Number: PHHY2012SK058851

PATIENT
  Age: 34 Year
  Sex: Female

DRUGS (2)
  1. MYFORTIC [Suspect]
     Indication: IMMUNOSUPPRESSION
     Dosage: 180 MG, BID
     Dates: start: 20120601
  2. CELLCEPT [Concomitant]

REACTIONS (4)
  - AMYLASE INCREASED [None]
  - DIARRHOEA [None]
  - LIPASE INCREASED [None]
  - VOMITING [None]
